FAERS Safety Report 11795753 (Version 3)
Quarter: 2016Q2

REPORT INFORMATION
  Report Type: Report from Study
  Country: US (occurrence: US)
  Receive Date: 20151202
  Receipt Date: 20160610
  Transmission Date: 20160815
  Serious: Yes (Other)
  Sender: FDA-Public Use
  Company Number: US-MDT-ADR-2015-02280

PATIENT
  Age: 61 Year
  Sex: Female

DRUGS (15)
  1. DILAUDID [Suspect]
     Active Substance: HYDROMORPHONE HYDROCHLORIDE
     Dosage: 3.5940 MG/DAY
     Route: 037
     Dates: start: 20160105
  2. BUPIVACAINE. [Suspect]
     Active Substance: BUPIVACAINE
     Dosage: 7.607 MG/DAY
     Route: 037
     Dates: start: 20160209
  3. BUPIVACAINE. [Suspect]
     Active Substance: BUPIVACAINE
     Dosage: 6.001 MG/DAY
     Route: 037
     Dates: start: 20151123, end: 20160105
  4. DILAUDID [Suspect]
     Active Substance: HYDROMORPHONE HYDROCHLORIDE
     Dosage: 3.8037 MG/DAY
     Route: 037
     Dates: start: 20160209
  5. DILAUDID [Suspect]
     Active Substance: HYDROMORPHONE HYDROCHLORIDE
     Dosage: 3.0007 MG/DAY
     Route: 037
     Dates: start: 20151123, end: 20160105
  6. COMPOUNDED BACLOFEN [Suspect]
     Active Substance: BACLOFEN
     Dosage: 310.76 MCG/DAY
     Route: 037
  7. BUPIVACAINE. [Suspect]
     Active Substance: BUPIVACAINE
     Dosage: 7.188 MG/DAY
     Route: 037
     Dates: start: 20160105
  8. COMPOUNDED BACLOFEN [Suspect]
     Active Substance: BACLOFEN
     Dosage: 249.29 MCG/DAY
     Route: 037
     Dates: start: 20160201, end: 20160209
  9. COMPOUNDED BACLOFEN [Suspect]
     Active Substance: BACLOFEN
     Dosage: 228.22 MCG/DAY
     Route: 037
     Dates: start: 20160209
  10. DILAUDID [Suspect]
     Active Substance: HYDROMORPHONE HYDROCHLORIDE
     Dosage: 5.1793 MG/DAY
     Route: 037
  11. BUPIVACAINE. [Suspect]
     Active Substance: BUPIVACAINE
     Dosage: 10.359 MG/DAY
     Route: 037
  12. COMPOUNDED BACLOFEN [Suspect]
     Active Substance: BACLOFEN
     Dosage: 215.64 MCG/DAY
     Route: 037
     Dates: start: 20160105
  13. DILAUDID [Suspect]
     Active Substance: HYDROMORPHONE HYDROCHLORIDE
     Dosage: 4.1549 MG/DAY
     Route: 037
     Dates: start: 20160201, end: 20160209
  14. BUPIVACAINE. [Suspect]
     Active Substance: BUPIVACAINE
     Dosage: 8.310 MG/DAY
     Route: 037
     Dates: start: 20160201, end: 20160209
  15. COMPOUNDED BACLOFEN [Suspect]
     Active Substance: BACLOFEN
     Dosage: 180.04 MCG/DAY
     Route: 037
     Dates: start: 20151123, end: 20160105

REACTIONS (4)
  - Implant site pain [Recovered/Resolved]
  - Catheter site pain [Recovered/Resolved]
  - Catheter site pain [Recovered/Resolved]
  - Pain [Recovered/Resolved]

NARRATIVE: CASE EVENT DATE: 20151027
